FAERS Safety Report 9552209 (Version 1)
Quarter: 2013Q3

REPORT INFORMATION
  Report Type: Spontaneous
  Country: FR (occurrence: FR)
  Receive Date: 20130925
  Receipt Date: 20130925
  Transmission Date: 20140515
  Serious: Yes (Hospitalization)
  Sender: FDA-Public Use
  Company Number: PHHY2013FR104612

PATIENT
  Age: 75 Year
  Sex: Female

DRUGS (5)
  1. PACLITAXEL EBEWE [Suspect]
     Indication: CHEMOTHERAPY
     Dosage: 150 MG, QW3
     Dates: start: 20130712, end: 201308
  2. AVASTIN [Suspect]
     Indication: CHEMOTHERAPY
     Dosage: 700 MG, QW3
     Dates: start: 20130712, end: 201308
  3. COTAREG [Concomitant]
     Route: 065
  4. FLECAINE [Concomitant]
     Route: 065
  5. DENOSUMAB [Concomitant]
     Dosage: 1 DF, QMO
     Route: 065

REACTIONS (1)
  - Cerebrovascular accident [Recovered/Resolved]
